FAERS Safety Report 7287526-0 (Version None)
Quarter: 2011Q1

REPORT INFORMATION
  Report Type: 
  Country: None (occurrence: None)
  Receive Date: 20110211
  Receipt Date: 20110203
  Transmission Date: 20110831
  Serious: Yes (Hospitalization, Other)
  Sender: FDA-Public Use
  Company Number: FR-NOVOPROD-321683

PATIENT
  Age: 66 Year
  Sex: Female
  Weight: 72 kg

DRUGS (6)
  1. COAPROVEL [Concomitant]
     Dosage: 300/12.5
     Route: 048
  2. VICTOZA [Suspect]
     Indication: TYPE 2 DIABETES MELLITUS
     Dosage: 0.6 MG, QD
     Route: 058
     Dates: start: 20100624, end: 20100629
  3. LERCAN [Concomitant]
     Dosage: 10 MG, QD
     Route: 048
  4. GLUCOPHAGE [Concomitant]
     Indication: DIABETES MELLITUS
     Dosage: 2000 MG, QD
     Route: 048
     Dates: end: 20100629
  5. ORAL ANTIDIABETICS [Concomitant]
  6. NOVONORM [Concomitant]
     Indication: DIABETES MELLITUS
     Dosage: 6 MG, QD
     Route: 048
     Dates: end: 20100629

REACTIONS (2)
  - KETOACIDOSIS [None]
  - ANTI-GAD ANTIBODY POSITIVE [None]
